FAERS Safety Report 19145879 (Version 2)
Quarter: 2021Q2

REPORT INFORMATION
  Report Type: Spontaneous
  Country: FR (occurrence: FR)
  Receive Date: 20210416
  Receipt Date: 20210511
  Transmission Date: 20210717
  Serious: Yes (Other)
  Sender: FDA-Public Use
  Company Number: FR-TEVA-2021-FR-1901408

PATIENT
  Age: 59 Year
  Sex: Female
  Weight: 106 kg

DRUGS (7)
  1. METFORMINE [Concomitant]
     Active Substance: METFORMIN HYDROCHLORIDE
  2. BECLOMETASONE BASE [Concomitant]
  3. LINEZOLIDE [Suspect]
     Active Substance: LINEZOLID
     Indication: INFECTION
     Dosage: 1200 MG
     Route: 048
     Dates: start: 20210217
  4. CAPTOPRIL. [Concomitant]
     Active Substance: CAPTOPRIL
  5. ATENOLOL. [Concomitant]
     Active Substance: ATENOLOL
  6. PRAVASTATINE SODIQUE [Concomitant]
     Active Substance: PRAVASTATIN SODIUM
  7. XYDALBA 500 MG, POUDRE POUR SOLUTION A DILUER POUR PERFUSION [Concomitant]
     Active Substance: DALBAVANCIN HYDROCHLORIDE

REACTIONS (2)
  - Anaemia [Not Recovered/Not Resolved]
  - Condition aggravated [Not Recovered/Not Resolved]

NARRATIVE: CASE EVENT DATE: 20210313
